FAERS Safety Report 4339397-X (Version None)
Quarter: 2004Q2

REPORT INFORMATION
  Report Type: 
  Country: None (occurrence: None)
  Receive Date: 20040412
  Receipt Date: 30040330
  Transmission Date: 20050107
  Serious: Yes (Death, Hospitalization, Other)
  Sender: FDA-Public Use
  Company Number: 2004005884

PATIENT
  Age: 55 Year
  Sex: Female

DRUGS (3)
  1. DILANTIN [Suspect]
     Indication: CONVULSION
     Dates: start: 20020101
  2. ALL OTHER THERAPEUTIC PRODUCTS [Concomitant]
  3. QUINAPRIL HCL [Concomitant]

REACTIONS (8)
  - ANXIETY [None]
  - DERMATITIS EXFOLIATIVE [None]
  - HEPATIC FAILURE [None]
  - INFUSION SITE INFECTION [None]
  - PAIN [None]
  - RASH [None]
  - RENAL FAILURE [None]
  - URINARY TRACT INFECTION [None]
